FAERS Safety Report 10184751 (Version 1)
Quarter: 2014Q2

REPORT INFORMATION
  Report Type: Spontaneous
  Country: US (occurrence: US)
  Receive Date: 20140521
  Receipt Date: 20140521
  Transmission Date: 20141212
  Serious: Yes (Hospitalization, Other)
  Sender: FDA-Public Use
  Company Number: US-JNJFOC-20140504616

PATIENT
  Sex: Male
  Weight: 90.72 kg

DRUGS (13)
  1. INVEGA [Suspect]
     Indication: BIPOLAR DISORDER
     Route: 048
  2. INVEGA [Suspect]
     Indication: BIPOLAR DISORDER
     Route: 048
     Dates: start: 201212
  3. INVEGA [Suspect]
     Indication: SCHIZOAFFECTIVE DISORDER
     Route: 048
     Dates: start: 201212
  4. INVEGA [Suspect]
     Indication: SCHIZOAFFECTIVE DISORDER
     Route: 048
  5. LATUDA [Suspect]
     Indication: BIPOLAR DISORDER
     Route: 048
  6. LATUDA [Suspect]
     Indication: BIPOLAR DISORDER
     Route: 048
     Dates: start: 201104, end: 2013
  7. LATUDA [Suspect]
     Indication: SCHIZOAFFECTIVE DISORDER
     Route: 048
  8. LATUDA [Suspect]
     Indication: SCHIZOAFFECTIVE DISORDER
     Route: 048
     Dates: start: 201104, end: 2013
  9. TRILEPTAL [Suspect]
     Indication: PRODUCT USED FOR UNKNOWN INDICATION
     Route: 065
  10. OXCARBAZEPINE [Concomitant]
     Route: 065
  11. ZOLPIDEM TARTRATE [Concomitant]
     Route: 065
  12. HYDROXYZINE [Concomitant]
     Route: 065
  13. PRAZOSIN [Concomitant]
     Route: 065

REACTIONS (10)
  - Liver disorder [Unknown]
  - Agitation [Recovering/Resolving]
  - Intentional overdose [Unknown]
  - Motor dysfunction [Unknown]
  - Dysphonia [Unknown]
  - Scratch [Unknown]
  - Extrapyramidal disorder [Unknown]
  - Insomnia [Not Recovered/Not Resolved]
  - Anaemia [Unknown]
  - Fatigue [Unknown]
